FAERS Safety Report 5795491-8 (Version None)
Quarter: 2008Q2

REPORT INFORMATION
  Report Type: 
  Country: None (occurrence: None)
  Receive Date: 20080630
  Receipt Date: 20080620
  Transmission Date: 20081010
  Serious: Yes (Other)
  Sender: FDA-Public Use
  Company Number: US-PFIZER INC-2008039350

PATIENT
  Sex: Female
  Weight: 56.7 kg

DRUGS (5)
  1. CHANTIX [Suspect]
     Indication: SMOKING CESSATION THERAPY
     Route: 048
     Dates: start: 20080107, end: 20080418
  2. CHANTIX [Suspect]
     Indication: NICOTINE DEPENDENCE
  3. PRAVASTATIN [Concomitant]
     Indication: BLOOD CHOLESTEROL
     Dosage: DAILY DOSE:20MG
  4. ZETIA [Concomitant]
     Dosage: DAILY DOSE:10MG
  5. LASIX [Concomitant]
     Dosage: DAILY DOSE:20MG

REACTIONS (3)
  - ARTHRALGIA [None]
  - SWELLING [None]
  - WEIGHT INCREASED [None]
